FAERS Safety Report 9557552 (Version 2)
Quarter: 2013Q4

REPORT INFORMATION
  Report Type: Spontaneous
  Country: JP (occurrence: None)
  Receive Date: 20130923
  Receipt Date: 20131114
  Transmission Date: 20140711
  Serious: Yes (Hospitalization)
  Sender: FDA-Public Use
  Company Number: ABR_01124_2013

PATIENT
  Age: 44 Year
  Sex: Male

DRUGS (1)
  1. GLIADEL [Suspect]
     Indication: MALIGNANT GLIOMA
     Dosage: INTRACEREBRAL
     Dates: start: 20130621, end: 20130621

REACTIONS (2)
  - Brain oedema [None]
  - Extradural abscess [None]
